FAERS Safety Report 7483469-8 (Version None)
Quarter: 2011Q2

REPORT INFORMATION
  Report Type: 
  Country: None (occurrence: None)
  Receive Date: 20110509
  Receipt Date: 20110423
  Transmission Date: 20111010
  Serious: Yes (Hospitalization)
  Sender: FDA-Public Use
  Company Number: ALA_01727_2011

PATIENT
  Sex: Male
  Weight: 83.0083 kg

DRUGS (21)
  1. LOPRESSOR [Concomitant]
  2. CATAPRES /00171101/ [Concomitant]
  3. VASOTEC [Concomitant]
  4. ALTACE [Concomitant]
  5. METOPROLOL TARTRATE [Concomitant]
  6. ATROPINE [Concomitant]
  7. NITRO /00003201/ [Concomitant]
  8. PHENERGAN /00033001/ [Concomitant]
  9. PROTONIX [Concomitant]
  10. ASPIRIN [Concomitant]
  11. NORVASC [Concomitant]
  12. K-DUR [Concomitant]
  13. MORPHINE [Concomitant]
  14. ASPIRIN [Concomitant]
  15. ZOFRAN [Concomitant]
  16. MEPERIDINE HCL [Concomitant]
  17. GEODON [Concomitant]
  18. REGLAN [Suspect]
     Indication: PRODUCT USED FOR UNKNOWN INDICATION
     Dosage: (DF)
     Dates: start: 20070601, end: 20080301
  19. HYDRODIURIL [Concomitant]
  20. ZOSYN [Concomitant]
  21. LOVENOX [Concomitant]

REACTIONS (13)
  - DELIRIUM [None]
  - MYOCARDIAL INFARCTION [None]
  - NERVE INJURY [None]
  - HYPERTENSION [None]
  - LOSS OF CONSCIOUSNESS [None]
  - SINUS BRADYCARDIA [None]
  - BUNDLE BRANCH BLOCK RIGHT [None]
  - CARDIAC FAILURE [None]
  - CHEST PAIN [None]
  - MUSCLE TWITCHING [None]
  - CARDIOMYOPATHY [None]
  - PERICARDITIS [None]
  - ABDOMINAL PAIN [None]
